FAERS Safety Report 5813684-8 (Version None)
Quarter: 2008Q3

REPORT INFORMATION
  Report Type: 
  Country: None (occurrence: None)
  Receive Date: 20080714
  Receipt Date: 20080627
  Transmission Date: 20090109
  Serious: Yes (Disabling, Other)
  Sender: FDA-Public Use
  Company Number: US-1166447

PATIENT
  Age: 34 Year
  Sex: Male

DRUGS (2)
  1. NEVANAC [Suspect]
     Indication: PROPHYLAXIS
     Dosage: (Q2H OPHTHALMIC)
     Route: 047
     Dates: start: 20080516, end: 20080520
  2. TOBRADEX [Suspect]
     Indication: PROPHYLAXIS
     Dosage: (Q2H OPHTHALMIC)
     Route: 047
     Dates: start: 20080516, end: 20080520

REACTIONS (13)
  - ACANTHAMOEBA INFECTION [None]
  - AUTOIMMUNE DISORDER [None]
  - CORNEAL CYST [None]
  - CORNEAL DISORDER [None]
  - CORNEAL INFILTRATES [None]
  - CORNEAL PERFORATION [None]
  - CORNEAL SCAR [None]
  - CORNEAL TRANSPLANT [None]
  - CULTURE POSITIVE [None]
  - EYE INFECTION [None]
  - EYE INFLAMMATION [None]
  - STAPHYLOCOCCAL INFECTION [None]
  - ULCERATIVE KERATITIS [None]
